APPROVED DRUG PRODUCT: DICYCLOMINE HYDROCHLORIDE
Active Ingredient: DICYCLOMINE HYDROCHLORIDE
Strength: 20MG
Dosage Form/Route: TABLET;ORAL
Application: A040161 | Product #001 | TE Code: AB
Applicant: HIKMA PHARMACEUTICALS
Approved: Oct 1, 1996 | RLD: No | RS: No | Type: RX